FAERS Safety Report 20992372 (Version 1)
Quarter: 2022Q2

REPORT INFORMATION
  Report Type: Report from Study
  Country: DE (occurrence: DE)
  Receive Date: 20220622
  Receipt Date: 20220622
  Transmission Date: 20220721
  Serious: Yes (Hospitalization)
  Sender: FDA-Public Use
  Company Number: DE-BAYER-2022A083587

PATIENT
  Age: 64 Year
  Sex: Female
  Weight: 72.4 kg

DRUGS (4)
  1. COPANLISIB [Suspect]
     Active Substance: COPANLISIB
     Indication: Marginal zone lymphoma
     Dosage: 60 MG (FIXED DOSE) ON DAY 1, 8 AND 15
     Route: 042
     Dates: start: 20220325
  2. COPANLISIB [Suspect]
     Active Substance: COPANLISIB
     Indication: Marginal zone lymphoma
     Dosage: 60 MG (FIXED DOSE) ON DAY 1, 8 AND 15
     Route: 042
     Dates: start: 20220527
  3. RITUXIMAB [Suspect]
     Active Substance: RITUXIMAB
     Indication: Marginal zone lymphoma
     Dosage: 375 MG/M2 DAY 1 OF EACH CYCLE
     Route: 042
     Dates: start: 20220326
  4. RITUXIMAB [Suspect]
     Active Substance: RITUXIMAB
     Indication: Marginal zone lymphoma
     Dosage: 375 MG/M2 DAY 1 OF EACH CYCLE
     Route: 042
     Dates: start: 20220520

REACTIONS (4)
  - Colitis [Recovered/Resolved]
  - Diarrhoea [Recovered/Resolved]
  - Weight decreased [Recovered/Resolved]
  - Vomiting [Recovered/Resolved]

NARRATIVE: CASE EVENT DATE: 20220601
